FAERS Safety Report 4469210-1 (Version None)
Quarter: 2004Q4

REPORT INFORMATION
  Report Type: 
  Country: None (occurrence: None)
  Receive Date: 20041005
  Receipt Date: 20040928
  Transmission Date: 20050328
  Serious: Yes (Life-Threatening, Hospitalization)
  Sender: FDA-Public Use
  Company Number: 2004235803CA

PATIENT
  Age: 65 Year
  Sex: Male
  Weight: 73.2 kg

DRUGS (5)
  1. CAMPTOSAR [Suspect]
     Indication: OESOPHAGEAL CARCINOMA
     Dosage: 118 MG, WEEKLY, CYCLIC, IV
     Route: 042
     Dates: start: 20040708, end: 20040831
  2. CISPLATIN [Suspect]
     Indication: OESOPHAGEAL CARCINOMA
     Dosage: 55 MG, CYCLE 3, IV
     Route: 042
     Dates: start: 20040708, end: 20040831
  3. HEPARIN [Concomitant]
  4. FRAGMIN [Concomitant]
  5. BENADRYL [Concomitant]

REACTIONS (3)
  - DEEP VEIN THROMBOSIS [None]
  - PULMONARY EMBOLISM [None]
  - RASH GENERALISED [None]
